FAERS Safety Report 23333011 (Version 1)
Quarter: 2023Q4

REPORT INFORMATION
  Report Type: Report from Study
  Country: US (occurrence: US)
  Receive Date: 20231222
  Receipt Date: 20231222
  Transmission Date: 20240109
  Serious: Yes (Other)
  Sender: FDA-Public Use
  Company Number: US-SUN PHARMACEUTICAL INDUSTRIES LTD-2023R1-425083

PATIENT
  Age: 16 Year
  Sex: Female

DRUGS (4)
  1. INDOMETHACIN [Suspect]
     Active Substance: INDOMETHACIN
     Indication: Sacroiliitis
     Dosage: UNK
     Route: 065
  2. NAPROXEN [Suspect]
     Active Substance: NAPROXEN
     Indication: Sacroiliitis
     Dosage: UNK
     Route: 065
  3. PREDNISONE [Suspect]
     Active Substance: PREDNISONE
     Indication: Sacroiliitis
     Dosage: UNK
     Route: 065
  4. HUMIRA [Suspect]
     Active Substance: ADALIMUMAB
     Indication: Sacroiliitis
     Dosage: UNK
     Route: 065

REACTIONS (1)
  - Treatment failure [Unknown]
